FAERS Safety Report 9935241 (Version 2)
Quarter: 2014Q1

REPORT INFORMATION
  Report Type: Spontaneous
  Country: US (occurrence: US)
  Receive Date: 20140228
  Receipt Date: 20140228
  Transmission Date: 20141002
  Serious: No
  Sender: FDA-Public Use
  Company Number: US-ASTRAZENECA-2013SE66790

PATIENT
  Age: 66 Year
  Sex: Female
  Weight: 84.4 kg

DRUGS (10)
  1. LISINOPRIL HYDROCHLOROTHIAZIDE [Suspect]
     Indication: HYPERTENSION
     Dosage: 10-12.5
     Route: 048
     Dates: start: 2008
  2. CRESTOR [Suspect]
     Indication: HYPERLIPIDAEMIA
     Route: 048
     Dates: start: 201205
  3. CRESTOR [Suspect]
     Indication: BLOOD CHOLESTEROL INCREASED
     Route: 048
     Dates: start: 201205
  4. CRESTOR [Suspect]
     Indication: HYPERLIPIDAEMIA
     Route: 048
  5. CRESTOR [Suspect]
     Indication: BLOOD CHOLESTEROL INCREASED
     Route: 048
  6. CRESTOR [Suspect]
     Indication: HYPERLIPIDAEMIA
     Route: 048
     Dates: start: 20130723, end: 20130801
  7. CRESTOR [Suspect]
     Indication: BLOOD CHOLESTEROL INCREASED
     Route: 048
     Dates: start: 20130723, end: 20130801
  8. CRESTOR [Suspect]
     Indication: HYPERLIPIDAEMIA
     Route: 048
     Dates: start: 20130802
  9. CRESTOR [Suspect]
     Indication: BLOOD CHOLESTEROL INCREASED
     Route: 048
     Dates: start: 20130802
  10. LEVOTHYROXINE [Concomitant]
     Indication: THYROID DISORDER
     Dosage: .88 MCG

REACTIONS (4)
  - Blood cholesterol increased [Not Recovered/Not Resolved]
  - Muscle spasms [Recovering/Resolving]
  - Myalgia [Not Recovered/Not Resolved]
  - Drug ineffective [Unknown]
